FAERS Safety Report 5412306-8 (Version None)
Quarter: 2007Q3

REPORT INFORMATION
  Report Type: 
  Country: None (occurrence: None)
  Receive Date: 20070810
  Receipt Date: 20070810
  Transmission Date: 20080115
  Serious: Yes (Life-Threatening, Hospitalization)
  Sender: FDA-Public Use
  Company Number: None

PATIENT
  Age: 81 Year
  Sex: Male

DRUGS (9)
  1. WARFARIN SODIUM [Suspect]
     Indication: ATRIAL FIBRILLATION
     Dosage: 2.5 MG DAILY PO
     Route: 048
  2. DIAMOX [Concomitant]
  3. DIGOXIN [Concomitant]
  4. FLOMAX [Concomitant]
  5. VERAPAMIL [Concomitant]
  6. XALATA [Concomitant]
  7. SIMVASTATIN [Concomitant]
  8. PILOCARPINE [Concomitant]
  9. TIMOPTIC [Concomitant]

REACTIONS (3)
  - COAGULOPATHY [None]
  - FALL [None]
  - SUBDURAL HAEMATOMA [None]
